FAERS Safety Report 11689252 (Version 2)
Quarter: 2016Q1

REPORT INFORMATION
  Report Type: Report from Study
  Country: US (occurrence: US)
  Receive Date: 20151102
  Receipt Date: 20160124
  Transmission Date: 20160525
  Serious: No
  Sender: FDA-Public Use
  Company Number: US-009507513-1510USA011376

PATIENT

DRUGS (1)
  1. HEXADROL [Suspect]
     Active Substance: DEXAMETHASONE
     Indication: PERITUMOURAL OEDEMA
     Dosage: 4 MG/DAY FOR 1 MONTH
     Route: 048

REACTIONS (19)
  - Weight decreased [Unknown]
  - Dysstasia [Unknown]
  - Increased appetite [Unknown]
  - Dyspepsia [Unknown]
  - Acne [Unknown]
  - Vomiting [Unknown]
  - Decreased appetite [Unknown]
  - Rash [Unknown]
  - Depression [Unknown]
  - Face oedema [Unknown]
  - Agitation [Unknown]
  - Poor quality sleep [Unknown]
  - Hiccups [Unknown]
  - Anger [Unknown]
  - Weight increased [Unknown]
  - Candida infection [Unknown]
  - Nausea [Unknown]
  - Nervousness [Unknown]
  - Skin fragility [Unknown]
